FAERS Safety Report 10377301 (Version 1)
Quarter: 2014Q3

REPORT INFORMATION
  Report Type: Spontaneous
  Country: JP (occurrence: JP)
  Receive Date: 20140812
  Receipt Date: 20140812
  Transmission Date: 20150326
  Serious: Yes (Death, Hospitalization)
  Sender: FDA-Public Use
  Company Number: PHHY2014JP095264

PATIENT
  Age: 67 Year
  Sex: Male

DRUGS (3)
  1. ARGATROBAN. [Suspect]
     Active Substance: ARGATROBAN
  2. HEPARIN [Suspect]
     Active Substance: HEPARIN SODIUM
     Indication: JUGULAR VEIN THROMBOSIS
     Route: 042
  3. NAFAMOSTAT MESILATE [Concomitant]
     Active Substance: NAFAMOSTAT MESYLATE
     Indication: ANTICOAGULANT THERAPY

REACTIONS (7)
  - Hypercoagulation [Unknown]
  - Death [Fatal]
  - Heparin-induced thrombocytopenia [Unknown]
  - Multi-organ disorder [Unknown]
  - Disseminated intravascular coagulation [Unknown]
  - Haemorrhagic diathesis [Unknown]
  - Activated partial thromboplastin time prolonged [Unknown]
